FAERS Safety Report 7764070-5 (Version None)
Quarter: 2011Q3

REPORT INFORMATION
  Report Type: 
  Country: None (occurrence: None)
  Receive Date: 20110921
  Receipt Date: 20110913
  Transmission Date: 20111222
  Serious: Yes (Death)
  Sender: FDA-Public Use
  Company Number: US-JNJFOC-20110906399

PATIENT
  Age: 40 Year
  Sex: Male

DRUGS (3)
  1. TOPIRAMATE [Suspect]
     Indication: CONVULSION
     Route: 048
  2. ROSIGLITAZONE MALEATE AND METFORMIN HCL [Suspect]
     Indication: DIABETES MELLITUS
     Route: 065
  3. DIVALPROEX SODIUM [Suspect]
     Indication: PRODUCT USED FOR UNKNOWN INDICATION
     Route: 065

REACTIONS (4)
  - HYPERTHERMIA [None]
  - ISCHAEMIA [None]
  - ACUTE MYOCARDIAL INFARCTION [None]
  - UNRESPONSIVE TO STIMULI [None]
